FAERS Safety Report 7051679-X (Version None)
Quarter: 2010Q4

REPORT INFORMATION
  Report Type: 
  Country: None (occurrence: None)
  Receive Date: 20101018
  Receipt Date: 20101018
  Transmission Date: 20110411
  Serious: Yes (Life-Threatening, Hospitalization)
  Sender: FDA-Public Use
  Company Number: None

PATIENT
  Age: 69 Year
  Sex: Female
  Weight: 83.9154 kg

DRUGS (1)
  1. LEVAQUIN [Suspect]
     Indication: BRONCHITIS
     Dosage: 7 TABLETS @ 250 MG. 1 TABLET EVERY DAY
     Dates: start: 20100916, end: 20100923

REACTIONS (10)
  - CONTUSION [None]
  - CONVULSION [None]
  - DIARRHOEA [None]
  - DIZZINESS [None]
  - MUSCLE SPASMS [None]
  - OCULAR ICTERUS [None]
  - PAIN [None]
  - PALPITATIONS [None]
  - SWELLING [None]
  - VOMITING [None]
